FAERS Safety Report 16699284 (Version 2)
Quarter: 2019Q4

REPORT INFORMATION
  Report Type: Spontaneous
  Country: JP (occurrence: JP)
  Receive Date: 20190813
  Receipt Date: 20191011
  Transmission Date: 20200122
  Serious: Yes (Hospitalization)
  Sender: FDA-Public Use
  Company Number: JP-ABBVIE-19K-087-2884174-00

PATIENT
  Age: 70 Year
  Sex: Male

DRUGS (2)
  1. MAVIRET [Suspect]
     Active Substance: GLECAPREVIR\PIBRENTASVIR
     Indication: CHRONIC HEPATITIS C
     Dosage: DURATION-3 WEEKS
     Route: 048
     Dates: start: 201907, end: 2019
  2. MAVIRET [Suspect]
     Active Substance: GLECAPREVIR\PIBRENTASVIR
     Dosage: DURATION-3 WEEKS
     Route: 048
     Dates: start: 2019

REACTIONS (4)
  - Pharyngeal swelling [Recovered/Resolved]
  - Nasopharyngitis [Unknown]
  - Tonsillitis [Recovered/Resolved]
  - Viral infection [Recovered/Resolved]

NARRATIVE: CASE EVENT DATE: 2019
